FAERS Safety Report 19975980 (Version 1)
Quarter: 2021Q4

REPORT INFORMATION
  Report Type: Report from Study
  Country: None (occurrence: US)
  Receive Date: 20211021
  Receipt Date: 20211021
  Transmission Date: 20220303
  Serious: Yes (Other)
  Sender: FDA-Public Use
  Company Number: US-ABBVIE-21K-163-3896288-00

PATIENT
  Sex: Female

DRUGS (2)
  1. SKYRIZI [Suspect]
     Active Substance: RISANKIZUMAB-RZAA
     Indication: Psoriasis
     Route: 058
  2. PFIZER BIONTECH [Concomitant]
     Indication: COVID-19 immunisation
     Route: 030

REACTIONS (10)
  - Parathyroidectomy [Recovered/Resolved]
  - Cough [Not Recovered/Not Resolved]
  - Pruritus [Not Recovered/Not Resolved]
  - Onychomycosis [Unknown]
  - Skin plaque [Unknown]
  - Blood glucose increased [Unknown]
  - Limb injury [Unknown]
  - Pollakiuria [Unknown]
  - Blood calcium increased [Recovered/Resolved]
  - Gout [Unknown]
